FAERS Safety Report 17110527 (Version 1)
Quarter: 2019Q4

REPORT INFORMATION
  Report Type: Spontaneous
  Country: DE (occurrence: DE)
  Receive Date: 20191204
  Receipt Date: 20191204
  Transmission Date: 20200122
  Serious: Yes (Hospitalization, Other)
  Sender: FDA-Public Use
  Company Number: DE-TEVA-2019-DE-1126159

PATIENT
  Age: 52 Year
  Sex: Male

DRUGS (3)
  1. KEPPRA [Concomitant]
     Active Substance: LEVETIRACETAM
     Indication: MUSCLE SPASMS
     Dates: start: 2010
  2. VENLAFAXIN ABZ [Suspect]
     Active Substance: VENLAFAXINE HYDROCHLORIDE
     Indication: DEPRESSION
     Dosage: UP TO 225 MG
     Dates: start: 2007, end: 201509
  3. TREVILOR RETARD [Suspect]
     Active Substance: VENLAFAXINE HYDROCHLORIDE
     Indication: DEPRESSION
     Dosage: 1X 50 UNTIL 225 MG / DAILY
     Dates: start: 200908

REACTIONS (7)
  - Loss of libido [Recovering/Resolving]
  - Physical assault [Unknown]
  - Aggression [Recovered/Resolved]
  - Legal problem [Unknown]
  - Family stress [Not Recovered/Not Resolved]
  - Emotional disorder [Recovering/Resolving]
  - Suicidal ideation [Recovering/Resolving]

NARRATIVE: CASE EVENT DATE: 200710
